FAERS Safety Report 15399143 (Version 1)
Quarter: 2018Q3

REPORT INFORMATION
  Report Type: Spontaneous
  Country: CA (occurrence: CA)
  Receive Date: 20180918
  Receipt Date: 20180918
  Transmission Date: 20181010
  Serious: Yes (Other)
  Sender: FDA-Public Use
  Company Number: CA-PFIZER INC-2018238773

PATIENT
  Age: 43 Year
  Sex: Female

DRUGS (4)
  1. FOLIC ACID. [Concomitant]
     Active Substance: FOLIC ACID
     Dosage: 5 MG, UNK
  2. PLAQUENIL [Interacting]
     Active Substance: HYDROXYCHLOROQUINE SULFATE
     Dosage: 400 MG, 1X/DAY
  3. ARAVA [Interacting]
     Active Substance: LEFLUNOMIDE
     Dosage: 10 MG, 1X/DAY
  4. METHOTREXATE SODIUM. [Suspect]
     Active Substance: METHOTREXATE SODIUM
     Dosage: 20 MG, UNK
     Route: 058

REACTIONS (4)
  - Drug interaction [Unknown]
  - Tuberculosis [Unknown]
  - Tuberculin test positive [Unknown]
  - Incorrect route of drug administration [Unknown]
